FAERS Safety Report 8482025-2 (Version None)
Quarter: 2012Q3

REPORT INFORMATION
  Report Type: 
  Country: None (occurrence: None)
  Receive Date: 20120702
  Receipt Date: 20120627
  Transmission Date: 20120928
  Serious: Yes (Hospitalization)
  Sender: FDA-Public Use
  Company Number: PHHY2011DE82098

PATIENT
  Sex: Female

DRUGS (8)
  1. CERTICAN [Suspect]
     Indication: IMMUNOSUPPRESSION
     Dosage: 2 MG, BID
     Route: 048
  2. CYCLO-PROGYNOVA [Concomitant]
     Dosage: 0.15 MG (1-0-0), UNK
     Route: 048
  3. BISOPROLOL FUMARATE [Concomitant]
     Dosage: 5 MG(1-0-0), UNK
     Route: 048
  4. TORSEMIDE [Concomitant]
     Dosage: 10 MG )1-0-0), UNK
     Route: 048
  5. ALLOPURINOL [Concomitant]
     Dosage: 150 MG (0-1-0), UNK
     Route: 048
  6. PREDNISOLONE [Concomitant]
     Dosage: 5 MG (1-0-0), UNK
     Route: 048
  7. AMLODIPINE [Concomitant]
     Dosage: 5 MG, UNK
     Route: 048
     Dates: end: 20110901
  8. CYCLO-PROGYNOVA [Concomitant]
     Dosage: 2 MG (1-0-0), UNK
     Route: 048

REACTIONS (6)
  - PSYCHOTIC DISORDER DUE TO A GENERAL MEDICAL CONDITION [None]
  - HYPOTENSION [None]
  - THINKING ABNORMAL [None]
  - FATIGUE [None]
  - PSYCHOMOTOR SKILLS IMPAIRED [None]
  - HALLUCINATION, AUDITORY [None]
